FAERS Safety Report 13266987 (Version 1)
Quarter: 2017Q1

REPORT INFORMATION
  Report Type: Spontaneous
  Country: FR (occurrence: FR)
  Receive Date: 20170224
  Receipt Date: 20170224
  Transmission Date: 20170428
  Serious: Yes (Hospitalization, Other)
  Sender: FDA-Public Use
  Company Number: FR-PFIZER INC-2017073741

PATIENT
  Age: 24 Year
  Sex: Male
  Weight: 52 kg

DRUGS (6)
  1. RIVOTRIL [Suspect]
     Active Substance: CLONAZEPAM
     Dosage: 50 MG, SINGLE
     Route: 048
     Dates: start: 20160923, end: 20160923
  2. FUNGIZONE [Suspect]
     Active Substance: AMPHOTERICIN B
     Dosage: UNK, SINGLE
     Route: 048
     Dates: start: 20160923, end: 20160923
  3. SALAZOPYRINE [Suspect]
     Active Substance: SULFASALAZINE
     Dosage: UNK, SINGLE
     Route: 048
     Dates: start: 20160923, end: 20160923
  4. FLAGYL [Suspect]
     Active Substance: METRONIDAZOLE\METRONIDAZOLE HYDROCHLORIDE
     Dosage: UNK, SINGLE
     Route: 048
     Dates: start: 20160923, end: 20160923
  5. ACTISKENAN [Suspect]
     Active Substance: MORPHINE SULFATE
     Dosage: UNK, SINGLE
     Route: 048
     Dates: start: 20160923, end: 20160923
  6. SKENAN [Suspect]
     Active Substance: MORPHINE SULFATE
     Dosage: UNK, SINGLE
     Route: 048
     Dates: start: 20160923, end: 20160923

REACTIONS (5)
  - Poisoning deliberate [Recovered/Resolved]
  - Rhabdomyolysis [Recovered/Resolved]
  - Pneumonia aspiration [Recovered/Resolved]
  - Coma [Recovered/Resolved]
  - Acute kidney injury [Recovered/Resolved]

NARRATIVE: CASE EVENT DATE: 20160923
